FAERS Safety Report 19452698 (Version 1)
Quarter: 2021Q2

REPORT INFORMATION
  Report Type: Spontaneous
  Country: US (occurrence: US)
  Receive Date: 20210623
  Receipt Date: 20210623
  Transmission Date: 20210717
  Serious: No
  Sender: FDA-Public Use
  Company Number: US-SA-2021SA203732

PATIENT
  Sex: Female

DRUGS (10)
  1. TRADJENTA [Concomitant]
     Active Substance: LINAGLIPTIN
     Dosage: 5MG
  2. MULTIVITAMIN [ASCORBIC ACID;CALCIUM PANTOTHENATE;ERGOCALCIFEROL;NICOTI [Concomitant]
     Active Substance: VITAMINS
  3. GLIMEPIRIDE. [Concomitant]
     Active Substance: GLIMEPIRIDE
  4. DUPIXENT [Suspect]
     Active Substance: DUPILUMAB
     Indication: DERMATITIS ATOPIC
     Route: 058
     Dates: start: 20210520
  5. LISINOPRIL. [Concomitant]
     Active Substance: LISINOPRIL
  6. MONTELUKAST [Concomitant]
     Active Substance: MONTELUKAST SODIUM
     Dosage: 10MG
  7. CINNAMON [CINNAMOMUM VERUM] [Concomitant]
  8. HYDROCHLOROTHIAZIDE. [Concomitant]
     Active Substance: HYDROCHLOROTHIAZIDE
  9. LEVOTHYROXINE. [Concomitant]
     Active Substance: LEVOTHYROXINE
  10. GABAPENTIN. [Concomitant]
     Active Substance: GABAPENTIN

REACTIONS (1)
  - Drug ineffective [Unknown]
